FAERS Safety Report 6125772-X (Version None)
Quarter: 2009Q1

REPORT INFORMATION
  Report Type: 
  Country: None (occurrence: None)
  Receive Date: 20090318
  Receipt Date: 20090304
  Transmission Date: 20090719
  Serious: Yes (Hospitalization)
  Sender: FDA-Public Use
  Company Number: DSM-2009-00208

PATIENT
  Age: 82 Year
  Sex: Female

DRUGS (5)
  1. OLMETEC (OLMESARTAN MEDOXOMIL) (OLMESARTAN MEDOXOMIL) [Suspect]
     Indication: HYPERTENSION
     Dosage: 1 IN 1 D, ORAL
     Route: 048
     Dates: start: 20080528, end: 20080925
  2. FLUDEX (INDAPAMIDE (INDAPAMIDE) [Suspect]
     Indication: HYPERTENSION
     Dosage: 1 IN 1 D, ORAL
     Route: 048
     Dates: start: 20080528, end: 20080925
  3. FENOFIBRATE BIOGARAN (FENOFIBRATE) (FENOFIBRATE) [Concomitant]
  4. DETENSIEL (BISOPROLOL) (BISOPROLOL) [Concomitant]
  5. LERCAN (LERCANIDIPINE HYDROCHLORIDE) (LERCANIDIPINE HYDROCHLORIDE) [Concomitant]

REACTIONS (2)
  - HYPONATRAEMIA [None]
  - INAPPROPRIATE ANTIDIURETIC HORMONE SECRETION [None]
